FAERS Safety Report 11117555 (Version 2)
Quarter: 2015Q2

REPORT INFORMATION
  Report Type: Report from Study
  Country: US (occurrence: US)
  Receive Date: 20150517
  Receipt Date: 20150521
  Transmission Date: 20150821
  Serious: Yes (Other)
  Sender: FDA-Public Use
  Company Number: US-ASTRAZENECA-2015SE14623

PATIENT
  Sex: Female

DRUGS (1)
  1. LYNPARZA [Suspect]
     Active Substance: OLAPARIB
     Indication: OVARIAN CANCER
     Dosage: TOOK 4 DOSES
     Route: 048

REACTIONS (5)
  - White blood cell count decreased [Unknown]
  - Somnolence [Unknown]
  - Adverse event [Unknown]
  - Fatigue [Unknown]
  - Leukaemia [Unknown]
